FAERS Safety Report 4841481-9 (Version None)
Quarter: 2005Q4

REPORT INFORMATION
  Report Type: 
  Country: None (occurrence: None)
  Receive Date: 20051130
  Receipt Date: 20050803
  Transmission Date: 20060501
  Serious: No
  Sender: FDA-Public Use
  Company Number: US-GLAXOSMITHKLINE-A0568818A

PATIENT
  Sex: Female

DRUGS (5)
  1. WELLBUTRIN XL [Suspect]
     Dosage: 150MG PER DAY
     Route: 048
     Dates: start: 20050301
  2. WELLBUTRIN [Suspect]
     Dosage: 300MG PER DAY
     Route: 048
     Dates: start: 20050301
  3. PRILOSEC [Concomitant]
  4. SINGULAIR [Concomitant]
  5. NICORETTE [Concomitant]

REACTIONS (3)
  - ABNORMAL DREAMS [None]
  - FEELING ABNORMAL [None]
  - WEIGHT INCREASED [None]
